FAERS Safety Report 17056322 (Version 2)
Quarter: 2019Q4

REPORT INFORMATION
  Report Type: Spontaneous
  Country: EG (occurrence: EG)
  Receive Date: 20191121
  Receipt Date: 20191126
  Transmission Date: 20200122
  Serious: Yes (Hospitalization)
  Sender: FDA-Public Use
  Company Number: EG-PFIZER INC-2019502348

PATIENT
  Age: 65 Year
  Sex: Female
  Weight: 75 kg

DRUGS (6)
  1. TRITACE [Suspect]
     Active Substance: RAMIPRIL
     Indication: HYPERTENSION
     Dosage: 0.5 DF, 1X/DAY, 1/2 TABLETS ONCE DAILY
     Route: 048
  2. ROWACHOL [BORNEOL;CAMPHENE;CINEOLE;MENTHOL;MENTHONE;OLEA EUROPAEA;PINE [Concomitant]
     Indication: CHOLELITHIASIS
     Dosage: UNK UNK, 3X/DAY
     Route: 048
  3. NOVALDOL [Suspect]
     Active Substance: ACETAMINOPHEN
     Indication: BONE PAIN
     Dosage: UNK, 1X/DAY (QD)
     Route: 048
  4. CEFTRIAXONE. [Suspect]
     Active Substance: CEFTRIAXONE
     Indication: ANTIBIOTIC PROPHYLAXIS
     Dosage: 1 DF, 1X/DAY, (1 VIAL ONCE DAILY)
     Route: 042
  5. PREGABALIN. [Suspect]
     Active Substance: PREGABALIN
     Indication: BONE PAIN
     Dosage: UNK UNK, 3X/DAY
     Route: 048
  6. PROTOFIX [Concomitant]
     Indication: GASTROINTESTINAL DISORDER
     Dosage: UNK UNK, 1X/DAY (QD)

REACTIONS (4)
  - Jaundice [Not Recovered/Not Resolved]
  - Vomiting [Unknown]
  - Hepatic enzyme increased [Unknown]
  - Blood bilirubin increased [Not Recovered/Not Resolved]
